FAERS Safety Report 7702313-4 (Version None)
Quarter: 2011Q3

REPORT INFORMATION
  Report Type: 
  Country: None (occurrence: None)
  Receive Date: 20110822
  Receipt Date: 20110811
  Transmission Date: 20111222
  Serious: Yes (Other)
  Sender: FDA-Public Use
  Company Number: US-ASTRAZENECA-2011SE48732

PATIENT
  Age: 50 Year
  Sex: Male

DRUGS (2)
  1. NEXIUM [Suspect]
     Route: 048
     Dates: start: 20100401
  2. NEXIUM [Suspect]
     Dosage: SOMETIMES TAKES TWO CAPSULES A DAY
     Route: 048

REACTIONS (3)
  - MYOCARDIAL INFARCTION [None]
  - DIABETES MELLITUS [None]
  - DRUG DOSE OMISSION [None]
